FAERS Safety Report 25617817 (Version 1)
Quarter: 2025Q3

REPORT INFORMATION
  Report Type: Spontaneous
  Country: US (occurrence: None)
  Receive Date: 20250728
  Receipt Date: 20250728
  Transmission Date: 20251021
  Serious: Yes (Death, Life-Threatening, Hospitalization, Disabling)
  Sender: FDA-CTU
  Company Number: None

PATIENT
  Age: 27 Year
  Sex: Male
  Weight: 90 kg

DRUGS (7)
  1. CLOZAPINE [Suspect]
     Active Substance: CLOZAPINE
     Indication: Schizophrenia
     Dosage: FREQUENCY : TWICE A DAY;?
     Route: 048
     Dates: start: 20250404
  2. COBENFY [Concomitant]
     Active Substance: TROSPIUM CHLORIDE\XANOMELINE
  3. LITHIUM [Concomitant]
     Active Substance: LITHIUM
  4. DIAZEPAM [Concomitant]
     Active Substance: DIAZEPAM
  5. PROPRANOLOL [Concomitant]
     Active Substance: PROPRANOLOL HYDROCHLORIDE
  6. DESMOPRESSIN [Concomitant]
     Active Substance: DESMOPRESSIN
  7. eszopilone [Concomitant]

REACTIONS (5)
  - Sepsis [None]
  - Neutropenia [None]
  - Agranulocytosis [None]
  - Pneumonia necrotising [None]
  - Pneumonia pseudomonal [None]

NARRATIVE: CASE EVENT DATE: 20250718
